FAERS Safety Report 19792382 (Version 5)
Quarter: 2022Q1

REPORT INFORMATION
  Report Type: Spontaneous
  Country: US (occurrence: US)
  Receive Date: 20210906
  Receipt Date: 20220310
  Transmission Date: 20220423
  Serious: Yes (Other)
  Sender: FDA-Public Use
  Company Number: US-GLAXOSMITHKLINE-US2021184729

PATIENT
  Age: 56 Year
  Sex: Female

DRUGS (3)
  1. ZEJULA [Suspect]
     Active Substance: NIRAPARIB
     Indication: Ovarian cancer
     Dosage: 200 MG, QD
     Dates: start: 20210802
  2. ZEJULA [Suspect]
     Active Substance: NIRAPARIB
     Dosage: 200 MG, QD
     Route: 048
  3. ZEJULA [Suspect]
     Active Substance: NIRAPARIB
     Dosage: 200 MG, QD
     Route: 048
     Dates: end: 20220303

REACTIONS (18)
  - Neuropathy peripheral [Not Recovered/Not Resolved]
  - Recurrent cancer [Unknown]
  - Bone pain [Not Recovered/Not Resolved]
  - Sleep disorder [Unknown]
  - Dizziness postural [Unknown]
  - Constipation [Recovering/Resolving]
  - Hyperhidrosis [Unknown]
  - Arthralgia [Not Recovered/Not Resolved]
  - Burning sensation [Unknown]
  - Fatigue [Unknown]
  - Carbohydrate antigen 125 increased [Not Recovered/Not Resolved]
  - Abdominal discomfort [Unknown]
  - Nausea [Unknown]
  - Vomiting [Unknown]
  - Oesophageal spasm [Unknown]
  - Abdominal pain [Not Recovered/Not Resolved]
  - Exploratory operation [Unknown]
  - Product dose omission issue [Unknown]

NARRATIVE: CASE EVENT DATE: 20220101
